FAERS Safety Report 8167330-1 (Version None)
Quarter: 2012Q1

REPORT INFORMATION
  Report Type: 
  Country: None (occurrence: None)
  Receive Date: 20120227
  Receipt Date: 20120222
  Transmission Date: 20120608
  Serious: No
  Sender: FDA-Public Use
  Company Number: US-PFIZER INC-2012006458

PATIENT
  Sex: Female
  Weight: 44 kg

DRUGS (13)
  1. SIMVASTATIN [Concomitant]
     Dosage: 20 MG, DAILY
  2. METOPROLOL TARTRATE [Concomitant]
     Dosage: 50 MG, 2X/DAY
  3. FAMOTIDINE [Concomitant]
     Dosage: 20 MG, 2X/DAY
  4. RISPERIDONE [Concomitant]
     Dosage: 1 MG, AS NEEDED
  5. ASPIRIN [Concomitant]
     Dosage: 81 MG, DAILY
  6. VITAMIN B-12 [Concomitant]
     Dosage: 1000 UG, 2X/DAY
  7. LEVOXYL [Suspect]
     Indication: BLOOD THYROID STIMULATING HORMONE INCREASED
     Dosage: 0.112 MG, DAILY
     Route: 048
     Dates: end: 20111201
  8. ENALAPRIL MALEATE AND HYDROCHLOROTHIAZIDE [Concomitant]
     Dosage: 20/12.5 MG, 2X/DAY
  9. NICOTINIC ACID AMIDE [Concomitant]
     Dosage: 1000 IU, DAILY
  10. NAMENDA [Concomitant]
     Dosage: 10 MG, 2X/DAY
  11. ALENDRONATE SODIUM [Concomitant]
     Dosage: 70 MG, WEEKLY
  12. AMLODIPINE [Concomitant]
     Dosage: 5 MG, DAILY
  13. CALCIUM [Concomitant]
     Dosage: 600 MG, 2X/DAY

REACTIONS (1)
  - DRUG INEFFECTIVE [None]
